FAERS Safety Report 18162134 (Version 2)
Quarter: 2020Q3

REPORT INFORMATION
  Report Type: Spontaneous
  Country: US (occurrence: US)
  Receive Date: 20200818
  Receipt Date: 20200829
  Transmission Date: 20201103
  Serious: Yes (Other)
  Sender: FDA-Public Use
  Company Number: US-AJANTA PHARMA USA INC.-2088726

PATIENT
  Age: 71 Year
  Sex: Male
  Weight: 73.34 kg

DRUGS (22)
  1. AMLODIPINE [Concomitant]
     Active Substance: AMLODIPINE BESYLATE
  2. TRIAMCINOLONE ACETONIDE. [Concomitant]
     Active Substance: TRIAMCINOLONE ACETONIDE
  3. ABACAVIR. [Concomitant]
     Active Substance: ABACAVIR
  4. LATANOPROST. [Concomitant]
     Active Substance: LATANOPROST
     Route: 047
  5. NITROGLYCERIN. [Concomitant]
     Active Substance: NITROGLYCERIN
     Route: 060
  6. ISENTRESS [Concomitant]
     Active Substance: RALTEGRAVIR POTASSIUM
  7. RANOLAZINE (ANDA 210054) [Suspect]
     Active Substance: RANOLAZINE
     Indication: ANGINA PECTORIS
     Route: 048
     Dates: start: 20200224, end: 20200801
  8. INDAPAMIDE. [Concomitant]
     Active Substance: INDAPAMIDE
  9. LORAZEPAM. [Concomitant]
     Active Substance: LORAZEPAM
  10. OMEPRAZOLE. [Concomitant]
     Active Substance: OMEPRAZOLE
  11. ONDANSETRON [Concomitant]
     Active Substance: ONDANSETRON
  12. ALBUTEROL. [Concomitant]
     Active Substance: ALBUTEROL
  13. ATORVASTATIN CALCIUM. [Concomitant]
     Active Substance: ATORVASTATIN CALCIUM
  14. BREO ELLIPTA [Concomitant]
     Active Substance: FLUTICASONE FUROATE\VILANTEROL TRIFENATATE
     Route: 045
  15. LAMIVUDINE. [Concomitant]
     Active Substance: LAMIVUDINE
  16. VITAMIN D [Concomitant]
     Active Substance: VITAMIN D NOS
     Route: 030
  17. LEVETIRACETAM. [Concomitant]
     Active Substance: LEVETIRACETAM
  18. BRILINTA [Concomitant]
     Active Substance: TICAGRELOR
  19. FLUOROURACIL CREAM [Concomitant]
     Active Substance: FLUOROURACIL
  20. ASPIRIN. [Concomitant]
     Active Substance: ASPIRIN
  21. VITAMIN B12 [Concomitant]
     Active Substance: CYANOCOBALAMIN
     Route: 030
  22. OLMESARTAN MEDOXOMIL. [Concomitant]
     Active Substance: OLMESARTAN MEDOXOMIL

REACTIONS (1)
  - Angina pectoris [Unknown]

NARRATIVE: CASE EVENT DATE: 20200729
